FAERS Safety Report 9292078 (Version 3)
Quarter: 2013Q4

REPORT INFORMATION
  Report Type: Spontaneous
  Country: US (occurrence: US)
  Receive Date: 20130516
  Receipt Date: 20131211
  Transmission Date: 20140711
  Serious: No
  Sender: FDA-Public Use
  Company Number: US-BIOGENIDEC-2013BI043237

PATIENT
  Age: 53 Year
  Sex: Female

DRUGS (3)
  1. AVONEX [Suspect]
     Indication: MULTIPLE SCLEROSIS
     Route: 030
     Dates: start: 20130326
  2. AVONEX [Suspect]
     Indication: MULTIPLE SCLEROSIS
     Route: 030
     Dates: start: 2013, end: 201306
  3. COPAXONE [Concomitant]
     Indication: PRODUCT USED FOR UNKNOWN INDICATION

REACTIONS (9)
  - White blood cell count increased [Recovered/Resolved]
  - White blood cell count abnormal [Recovered/Resolved]
  - Balance disorder [Recovered/Resolved]
  - Blood test abnormal [Recovered/Resolved]
  - Adverse event [Unknown]
  - Mass [Recovered/Resolved]
  - Contusion [Recovered/Resolved]
  - Rash papular [Recovered/Resolved]
  - Liver function test abnormal [Not Recovered/Not Resolved]
